FAERS Safety Report 7139077-1 (Version None)
Quarter: 2010Q4

REPORT INFORMATION
  Report Type: 
  Country: None (occurrence: None)
  Receive Date: 20101206
  Receipt Date: 20101126
  Transmission Date: 20110411
  Serious: Yes (Death, Hospitalization)
  Sender: FDA-Public Use
  Company Number: B0470577A

PATIENT
  Sex: Female

DRUGS (1)
  1. AVANDAMET [Suspect]
     Dates: start: 20060530

REACTIONS (3)
  - ADENOCARCINOMA [None]
  - PANCREATIC CYST [None]
  - PANCREATITIS [None]
